FAERS Safety Report 4381480-7 (Version None)
Quarter: 2004Q2

REPORT INFORMATION
  Report Type: 
  Country: None (occurrence: None)
  Receive Date: 20040621
  Receipt Date: 20031125
  Transmission Date: 20050107
  Serious: Yes (Hospitalization)
  Sender: FDA-Public Use
  Company Number: PHHO2003AU15297

PATIENT
  Age: 55 Year
  Sex: Female

DRUGS (6)
  1. FTY720 VS MYCOPHENOLATE MOFETIL [Suspect]
     Indication: RENAL TRANSPLANT
     Dosage: CODE NOT BROKEN
     Route: 048
     Dates: start: 20031112
  2. NEORAL [Suspect]
     Indication: RENAL TRANSPLANT
     Dosage: 150 MG, BID
     Route: 048
     Dates: start: 20031122
  3. NEORAL [Suspect]
     Dosage: 75 MG, BID
     Route: 048
     Dates: start: 20031227
  4. NEORAL [Suspect]
     Route: 048
     Dates: start: 20040101
  5. PREDNISONE [Suspect]
     Indication: RENAL TRANSPLANT
     Dosage: 30 MG, QD
     Route: 048
     Dates: start: 20031115
  6. PREDNISONE [Suspect]
     Dosage: 12.5 MG, QD
     Route: 048
     Dates: start: 20031230

REACTIONS (11)
  - ASTHENIA [None]
  - CHEST WALL PAIN [None]
  - DEHYDRATION [None]
  - DIZZINESS [None]
  - DYSPNOEA [None]
  - FLUID OVERLOAD [None]
  - HYPERCALCAEMIA [None]
  - NAUSEA [None]
  - PULMONARY OEDEMA [None]
  - PYREXIA [None]
  - SEPSIS [None]
